FAERS Safety Report 6941868-4 (Version None)
Quarter: 2010Q3

REPORT INFORMATION
  Report Type: 
  Country: None (occurrence: None)
  Receive Date: 20100826
  Receipt Date: 20100816
  Transmission Date: 20110219
  Serious: Yes (Other)
  Sender: FDA-Public Use
  Company Number: ES-PFIZER INC-2010103116

PATIENT

DRUGS (1)
  1. METRONIDAZOLE [Suspect]

REACTIONS (1)
  - PSYCHOTIC DISORDER [None]
